FAERS Safety Report 17439123 (Version 4)
Quarter: 2020Q1

REPORT INFORMATION
  Report Type: Spontaneous
  Country: US (occurrence: US)
  Receive Date: 20200220
  Receipt Date: 20200303
  Transmission Date: 20200409
  Serious: Yes (Hospitalization, Other)
  Sender: FDA-Public Use
  Company Number: US-UNITED THERAPEUTICS-UNT-2020-002593

PATIENT
  Sex: Male
  Weight: 63.39 kg

DRUGS (1)
  1. REMODULIN [Suspect]
     Active Substance: TREPROSTINIL
     Indication: PULMONARY ARTERIAL HYPERTENSION
     Dosage: 0.097 ?G/KG, CONTINUING
     Route: 041
     Dates: start: 20190118

REACTIONS (5)
  - Pulmonary arterial hypertension [Unknown]
  - Pulmonary oedema [Unknown]
  - Dyspnoea [Unknown]
  - Cough [Unknown]
  - Oxygen saturation decreased [Unknown]
